FAERS Safety Report 25718037 (Version 1)
Quarter: 2025Q3

REPORT INFORMATION
  Report Type: Spontaneous
  Country: US (occurrence: US)
  Receive Date: 20250823
  Receipt Date: 20250823
  Transmission Date: 20251021
  Serious: No
  Sender: ALEXION PHARMACEUTICALS
  Company Number: US-AstraZeneca-CH-00933115A

PATIENT
  Sex: Female

DRUGS (1)
  1. SOLIRIS [Suspect]
     Active Substance: ECULIZUMAB
     Indication: Myasthenia gravis
     Dosage: 900 MILLIGRAM, QW
     Route: 065

REACTIONS (5)
  - Headache [Unknown]
  - Pruritus [Unknown]
  - Hypoaesthesia oral [Unknown]
  - Intranasal hypoaesthesia [Unknown]
  - Chest discomfort [Unknown]
